FAERS Safety Report 5897180-8 (Version None)
Quarter: 2008Q3

REPORT INFORMATION
  Report Type: 
  Country: None (occurrence: None)
  Receive Date: 20080923
  Receipt Date: 20080912
  Transmission Date: 20090109
  Serious: Yes (Disabling, Other)
  Sender: FDA-Public Use
  Company Number: 2008AP001742

PATIENT
  Age: 86 Year
  Sex: Female
  Weight: 53.5244 kg

DRUGS (14)
  1. DILT-CD [Suspect]
     Dosage: 180 MG;QD;PO
     Route: 048
     Dates: start: 20080201, end: 20080501
  2. PILOCARPINE [Concomitant]
  3. LATANOPROST [Concomitant]
  4. TIMOLOL [Concomitant]
  5. LOSARTAN POTASSIUM [Concomitant]
  6. . [Concomitant]
  7. . [Concomitant]
  8. . [Concomitant]
  9. FEXOFENADINE HYDROCHLORIDE [Concomitant]
  10. LEVOTHYROXINE SODIUM [Concomitant]
  11. LANSOPRAZOLE [Concomitant]
  12. LEVOFLOXAIN [Concomitant]
  13. RISEDRONATE SODIUM [Concomitant]
  14. AMLODIPINE BESYLATE [Concomitant]

REACTIONS (6)
  - ARTHRALGIA [None]
  - CONDITION AGGRAVATED [None]
  - DYSGEUSIA [None]
  - GLAUCOMA [None]
  - PAIN [None]
  - VISUAL IMPAIRMENT [None]
